FAERS Safety Report 6889284-8 (Version None)
Quarter: 2010Q3

REPORT INFORMATION
  Report Type: 
  Country: None (occurrence: None)
  Receive Date: 20100730
  Receipt Date: 20080129
  Transmission Date: 20110219
  Serious: No
  Sender: FDA-Public Use
  Company Number: US-PFIZER INC-2008010386

PATIENT
  Sex: Female
  Weight: 72.727 kg

DRUGS (4)
  1. LIPITOR [Suspect]
     Indication: BLOOD CHOLESTEROL
  2. SYNTHROID [Concomitant]
  3. CHONDROITIN/GLUCOSAMINE [Concomitant]
  4. CENTRUM SILVER [Concomitant]

REACTIONS (1)
  - MEMORY IMPAIRMENT [None]
